FAERS Safety Report 18043349 (Version 1)
Quarter: 2020Q3

REPORT INFORMATION
  Report Type: Other
  Country: GB (occurrence: GB)
  Receive Date: 20200720
  Receipt Date: 20200720
  Transmission Date: 20201103
  Serious: Yes (Other)
  Sender: FDA-Public Use
  Company Number: GB-ROCHE-2640389

PATIENT
  Age: 33 Year
  Sex: Female

DRUGS (1)
  1. OCREVUS [Suspect]
     Active Substance: OCRELIZUMAB
     Indication: RELAPSING-REMITTING MULTIPLE SCLEROSIS
     Dosage: 6 MONTH DOSE
     Route: 041
     Dates: start: 20191024

REACTIONS (6)
  - Paraesthesia [Not Recovered/Not Resolved]
  - Dizziness [Unknown]
  - Back pain [Unknown]
  - Neuralgia [Not Recovered/Not Resolved]
  - Kidney infection [Recovered/Resolved]
  - Throat irritation [Recovered/Resolved]

NARRATIVE: CASE EVENT DATE: 20200603
